FAERS Safety Report 21456874 (Version 1)
Quarter: 2022Q4

REPORT INFORMATION
  Report Type: Spontaneous
  Country: CN (occurrence: CN)
  Receive Date: 20221014
  Receipt Date: 20221014
  Transmission Date: 20230113
  Serious: Yes (Hospitalization)
  Sender: FDA-Public Use
  Company Number: CN-NOVARTISPH-NVSC2022CN231323

PATIENT
  Age: 57 Year
  Sex: Female

DRUGS (2)
  1. TRILEPTAL [Suspect]
     Active Substance: OXCARBAZEPINE
     Indication: Neuritis
     Dosage: 0.3 G, BID
     Route: 048
     Dates: start: 20220921, end: 20220922
  2. TRILEPTAL [Suspect]
     Active Substance: OXCARBAZEPINE
     Indication: Analgesic therapy

REACTIONS (3)
  - Drug eruption [Recovering/Resolving]
  - Chest discomfort [Recovering/Resolving]
  - Product use in unapproved indication [Recovering/Resolving]

NARRATIVE: CASE EVENT DATE: 20220922
